FAERS Safety Report 10049585 (Version 1)
Quarter: 2014Q2

REPORT INFORMATION
  Report Type: Spontaneous
  Country: VE (occurrence: VE)
  Receive Date: 20140401
  Receipt Date: 20140401
  Transmission Date: 20141212
  Serious: Yes (Other)
  Sender: FDA-Public Use
  Company Number: PHHY2014VE038579

PATIENT
  Sex: Female

DRUGS (2)
  1. TOBI [Suspect]
     Indication: CYSTIC FIBROSIS
     Route: 055
  2. ANTIBIOTICS [Suspect]
     Indication: RESPIRATORY TRACT INFECTION
     Route: 042

REACTIONS (9)
  - Threatened labour [Unknown]
  - Cardio-respiratory arrest [Unknown]
  - Respiratory tract infection [Unknown]
  - Bronchial obstruction [Unknown]
  - Lung disorder [Recovered/Resolved]
  - Disease recurrence [Recovered/Resolved]
  - Maternal exposure during pregnancy [Unknown]
  - Normal newborn [Unknown]
  - Exposure during breast feeding [Unknown]
